FAERS Safety Report 9109597 (Version 3)
Quarter: 2014Q1

REPORT INFORMATION
  Report Type: Other
  Country: JP (occurrence: JP)
  Receive Date: 20130222
  Receipt Date: 20140321
  Transmission Date: 20141002
  Serious: Yes (Hospitalization)
  Sender: FDA-Public Use
  Company Number: JP-BRISTOL-MYERS SQUIBB COMPANY-17400441

PATIENT
  Age: 12 Year
  Sex: Female
  Weight: 62 kg

DRUGS (3)
  1. ABILIFY [Suspect]
     Indication: SCHIZOPHRENIA
     Route: 048
  2. OLANZAPINE [Concomitant]
  3. HALOPERIDOL [Concomitant]

REACTIONS (1)
  - Encephalitis autoimmune [Recovering/Resolving]
